FAERS Safety Report 14568479 (Version 1)
Quarter: 2018Q1

REPORT INFORMATION
  Report Type: Spontaneous
  Country: US (occurrence: US)
  Receive Date: 20180223
  Receipt Date: 20180223
  Transmission Date: 20180509
  Serious: Yes (Other)
  Sender: FDA-Public Use
  Company Number: US-TEVA-2018-US-861194

PATIENT
  Sex: Female
  Weight: 67.19 kg

DRUGS (5)
  1. XANAX XR [Concomitant]
     Active Substance: ALPRAZOLAM
     Indication: FIBROMYALGIA
  2. ALPRAZOLAM. [Suspect]
     Active Substance: ALPRAZOLAM
     Dosage: 8 MILLIGRAM DAILY;
     Route: 048
  3. XANAX XR [Concomitant]
     Active Substance: ALPRAZOLAM
     Indication: ANXIETY
  4. CARDIZEM [Concomitant]
     Active Substance: DILTIAZEM HYDROCHLORIDE
     Indication: SUPRAVENTRICULAR TACHYCARDIA
     Dosage: 60 MILLIGRAM DAILY;
  5. BENADRYL [Concomitant]
     Active Substance: DIPHENHYDRAMINE HYDROCHLORIDE

REACTIONS (6)
  - Drug hypersensitivity [Not Recovered/Not Resolved]
  - Swollen tongue [Unknown]
  - Swelling face [Unknown]
  - Lip swelling [Unknown]
  - Dyspnoea [Unknown]
  - Mouth swelling [Unknown]

NARRATIVE: CASE EVENT DATE: 2017
